FAERS Safety Report 10023850 (Version 1)
Quarter: 2014Q1

REPORT INFORMATION
  Report Type: Spontaneous
  Country: US (occurrence: None)
  Receive Date: 20140122
  Receipt Date: 20140122
  Transmission Date: 20141002
  Serious: Yes (Hospitalization)
  Sender: FDA-Public Use
  Company Number: 13-05072

PATIENT
  Sex: Female
  Weight: 104.33 kg

DRUGS (7)
  1. ALBUTEROL SULFATE [Suspect]
     Indication: ASTHMA
     Dosage: UNKNOWN 054
  2. SYNTHROID (LEVOTHYROXINE) [Concomitant]
  3. CYTOMEL (LIOTHYRONINE) [Concomitant]
  4. BENICAR [Concomitant]
  5. ALBUTEROL INHALER [Concomitant]
  6. DUONEB (IPRATROPIUM BROMIDE/ALBUTEROL SULFATE INHALTION SOLUTION) [Concomitant]
  7. XANAX (ALPRAZOLAM) [Concomitant]

REACTIONS (2)
  - Pneumonia [None]
  - Drug ineffective [None]
